FAERS Safety Report 10183121 (Version 6)
Quarter: 2015Q2

REPORT INFORMATION
  Report Type: Spontaneous
  Country: US (occurrence: US)
  Receive Date: 20140520
  Receipt Date: 20150629
  Transmission Date: 20150821
  Serious: Yes (Hospitalization, Other)
  Sender: FDA-Public Use
  Company Number: US-009507513-1405USA004501

PATIENT
  Sex: Female
  Weight: 58.5 kg

DRUGS (4)
  1. PREDNISONE. [Concomitant]
     Active Substance: PREDNISONE
     Indication: RHEUMATOID ARTHRITIS
     Dosage: UNK
     Dates: start: 1991
  2. BONIVA [Suspect]
     Active Substance: IBANDRONATE SODIUM
     Indication: OSTEOPOROSIS
     Dosage: 150 MG, UNK
     Dates: end: 2012
  3. REMICADE [Concomitant]
     Active Substance: INFLIXIMAB
     Indication: RHEUMATOID ARTHRITIS
     Dosage: UNK
     Dates: start: 1991
  4. FOSAMAX [Suspect]
     Active Substance: ALENDRONATE SODIUM
     Indication: OSTEOPOROSIS
     Dosage: 70 MG, QW
     Route: 048
     Dates: start: 2001

REACTIONS (27)
  - Haemoglobin decreased [Recovering/Resolving]
  - Electrocardiogram abnormal [Unknown]
  - Intramedullary rod insertion [Unknown]
  - Hypertension [Unknown]
  - Gastrointestinal disorder [Unknown]
  - Osteopenia [Unknown]
  - Tuberculin test positive [Unknown]
  - Intervertebral disc disorder [Unknown]
  - Intramedullary rod insertion [Unknown]
  - Kyphosis [Unknown]
  - Lumbar spinal stenosis [Unknown]
  - Fistula [Unknown]
  - Intervertebral disc protrusion [Unknown]
  - Pain in extremity [Unknown]
  - Adverse event [Unknown]
  - Diverticulitis [Unknown]
  - Femur fracture [Recovered/Resolved]
  - Peptic ulcer [Unknown]
  - Foot operation [Unknown]
  - Tooth extraction [Unknown]
  - Herpes zoster [Unknown]
  - Gastrooesophageal reflux disease [Unknown]
  - Femur fracture [Recovered/Resolved]
  - Oral surgery [Unknown]
  - Spinal compression fracture [Unknown]
  - Spinal compression fracture [Not Recovered/Not Resolved]
  - Spinal osteoarthritis [Unknown]

NARRATIVE: CASE EVENT DATE: 2006
